FAERS Safety Report 9456267 (Version 1)
Quarter: 2013Q3

REPORT INFORMATION
  Report Type: Spontaneous
  Country: US (occurrence: None)
  Receive Date: 20130812
  Receipt Date: 20130812
  Transmission Date: 20140515
  Serious: Yes (Hospitalization, Other)
  Sender: FDA-Public Use
  Company Number: None

PATIENT
  Sex: Female

DRUGS (1)
  1. OMEPRAZOLE [Suspect]
     Indication: GASTROOESOPHAGEAL REFLUX DISEASE
     Dosage: 20MG  1 IN AM?MONTHS ENDING 7/1/13
     Dates: end: 20130701

REACTIONS (8)
  - Diarrhoea [None]
  - Rash [None]
  - Scab [None]
  - Tremor [None]
  - Headache [None]
  - Dizziness [None]
  - Haemorrhoids [None]
  - Abdominal distension [None]
